FAERS Safety Report 7879797-4 (Version None)
Quarter: 2011Q4

REPORT INFORMATION
  Report Type: 
  Country: None (occurrence: None)
  Receive Date: 20111101
  Receipt Date: 20111003
  Transmission Date: 20120403
  Serious: Yes (Hospitalization)
  Sender: FDA-Public Use
  Company Number: CA-JNJFOC-20110910944

PATIENT
  Sex: Male
  Weight: 118.8 kg

DRUGS (4)
  1. APO-ZOPICLONE [Concomitant]
     Route: 065
  2. REMICADE [Suspect]
     Indication: RHEUMATOID ARTHRITIS
     Route: 042
     Dates: start: 20100323
  3. ALL OTHER THERAPEUTIC PRODUCTS [Concomitant]
     Route: 065
  4. SULFASALAZINE [Concomitant]
     Route: 065

REACTIONS (2)
  - BLOOD TEST ABNORMAL [None]
  - BIOPSY LIVER [None]
